FAERS Safety Report 10632670 (Version 2)
Quarter: 2014Q4

REPORT INFORMATION
  Report Type: Spontaneous
  Country: US (occurrence: US)
  Receive Date: 20141205
  Receipt Date: 20141205
  Transmission Date: 20150529
  Serious: No
  Sender: FDA-Public Use
  Company Number: US-BRISTOL-MYERS SQUIBB COMPANY-21589130

PATIENT
  Age: 74 Year
  Sex: Female
  Weight: 100.22 kg

DRUGS (4)
  1. METFORMIN [Concomitant]
     Active Substance: METFORMIN HYDROCHLORIDE
     Indication: DIABETES MELLITUS
  2. BYDUREON [Suspect]
     Active Substance: EXENATIDE
     Indication: DIABETES MELLITUS
     Dosage: ONGOING,BAT.NO-AAA1068,EXP.DT-JAN2016
     Route: 058
  3. BYETTA [Suspect]
     Active Substance: EXENATIDE
     Route: 058
  4. GLYBURIDE. [Concomitant]
     Active Substance: GLYBURIDE
     Indication: DIABETES MELLITUS

REACTIONS (6)
  - Drug administration error [Unknown]
  - Injection site nodule [Not Recovered/Not Resolved]
  - Malaise [Unknown]
  - Product quality issue [Unknown]
  - Injection site pain [Unknown]
  - Decreased appetite [Unknown]
